FAERS Safety Report 6292850-4 (Version None)
Quarter: 2009Q3

REPORT INFORMATION
  Report Type: 
  Country: None (occurrence: None)
  Receive Date: 20090731
  Receipt Date: 20090722
  Transmission Date: 20100115
  Serious: Yes (Other)
  Sender: FDA-Public Use
  Company Number: PHHY2009BG04212

PATIENT
  Sex: Female
  Weight: 41 kg

DRUGS (2)
  1. EXJADE [Suspect]
     Indication: THALASSAEMIA BETA
     Dosage: 18-20 MG/KG/DAY
     Route: 048
     Dates: start: 20090115
  2. EXJADE [Suspect]
     Dosage: 12-10 MG/KG/DAY
     Route: 048

REACTIONS (4)
  - HEPATIC ENZYME INCREASED [None]
  - LIVER DISORDER [None]
  - SPLENOMEGALY [None]
  - TRANSAMINASES INCREASED [None]
